FAERS Safety Report 16744071 (Version 1)
Quarter: 2019Q3

REPORT INFORMATION
  Report Type: Spontaneous
  Country: AU (occurrence: AU)
  Receive Date: 20190827
  Receipt Date: 20190827
  Transmission Date: 20191005
  Serious: Yes (Other)
  Sender: FDA-Public Use
  Company Number: AU-ROCHE-2381514

PATIENT
  Age: 78 Year
  Sex: Male

DRUGS (1)
  1. RIVOTRIL [Suspect]
     Active Substance: CLONAZEPAM
     Indication: ANXIETY
     Dosage: DOES 1/4 TABLET TWICE DAILY
     Route: 048

REACTIONS (6)
  - Contusion [Unknown]
  - Intentional product use issue [Unknown]
  - Transient ischaemic attack [Unknown]
  - Intentional product misuse [Unknown]
  - Fall [Unknown]
  - Off label use [Unknown]
